FAERS Safety Report 4589966-7 (Version None)
Quarter: 2005Q1

REPORT INFORMATION
  Report Type: 
  Country: None (occurrence: None)
  Receive Date: 20050125
  Receipt Date: 20040826
  Transmission Date: 20050727
  Serious: No
  Sender: FDA-Public Use
  Company Number: USA040772195

PATIENT
  Age: 69 Year
  Sex: Female

DRUGS (9)
  1. FORTEO [Suspect]
     Indication: OSTEOPOROSIS
     Dates: start: 20040101
  2. ELAVIL [Concomitant]
  3. TRILISATE [Concomitant]
  4. ACCUPRIL [Concomitant]
  5. LEVOXYL [Concomitant]
  6. NEURONTIN [Concomitant]
  7. LIPITOR [Concomitant]
  8. NEXIUM [Concomitant]
  9. SYNTHROID [Concomitant]

REACTIONS (2)
  - DEMENTIA [None]
  - DEPRESSION [None]
